FAERS Safety Report 5066331-X (Version None)
Quarter: 2006Q3

REPORT INFORMATION
  Report Type: 
  Country: None (occurrence: None)
  Receive Date: 20060727
  Receipt Date: 20060713
  Transmission Date: 20061208
  Serious: Yes (Other)
  Sender: FDA-Public Use
  Company Number: 2006US-02998

PATIENT
  Age: 19 Year
  Sex: Male

DRUGS (1)
  1. ISOTRETINOIN [Suspect]
     Dosage: 40 MG, QD,
     Dates: start: 20060703, end: 20060710

REACTIONS (2)
  - PARAESTHESIA [None]
  - PYREXIA [None]
